FAERS Safety Report 7548349-8 (Version None)
Quarter: 2011Q2

REPORT INFORMATION
  Report Type: 
  Country: None (occurrence: None)
  Receive Date: 20110615
  Receipt Date: 20110525
  Transmission Date: 20111010
  Serious: Yes (Other)
  Sender: FDA-Public Use
  Company Number: US-BAYER-2011-030622

PATIENT
  Age: 60 Year
  Sex: Female

DRUGS (3)
  1. MUSCLE RELAXANTS [Concomitant]
     Indication: PAIN
     Dosage: UNK
  2. NEXAVAR [Suspect]
     Indication: HEPATIC NEOPLASM MALIGNANT
     Dosage: 200 MG, BID
     Route: 048
     Dates: start: 20110330, end: 20110501
  3. NEXAVAR [Suspect]
     Dosage: 200 MG, BID
     Route: 048
     Dates: start: 20110517

REACTIONS (5)
  - DECREASED APPETITE [None]
  - MUSCULAR WEAKNESS [None]
  - SPEECH DISORDER [None]
  - DIARRHOEA [None]
  - SIALOADENITIS [None]
